FAERS Safety Report 6368983-0 (Version None)
Quarter: 2009Q3

REPORT INFORMATION
  Report Type: 
  Country: None (occurrence: None)
  Receive Date: 20090918
  Receipt Date: 20090918
  Transmission Date: 20100115
  Serious: Yes (Hospitalization)
  Sender: FDA-Public Use
  Company Number: None

PATIENT
  Age: 93 Year
  Sex: Female
  Weight: 56.3 kg

DRUGS (1)
  1. WARFARIN SODIUM [Suspect]
     Dosage: 5MG DAILY PO
     Route: 048

REACTIONS (7)
  - ABDOMINAL PAIN [None]
  - FAECES DISCOLOURED [None]
  - HAEMATEMESIS [None]
  - HAEMATOCRIT DECREASED [None]
  - HAEMOGLOBIN DECREASED [None]
  - HEPATIC ENZYME INCREASED [None]
  - INTERNATIONAL NORMALISED RATIO INCREASED [None]
